FAERS Safety Report 7095423-9 (Version None)
Quarter: 2010Q4

REPORT INFORMATION
  Report Type: 
  Country: None (occurrence: None)
  Receive Date: 20101111
  Receipt Date: 20101027
  Transmission Date: 20110411
  Serious: Yes (Other)
  Sender: FDA-Public Use
  Company Number: CH-BRISTOL-MYERS SQUIBB COMPANY-15013139

PATIENT
  Age: 39 Year
  Sex: Female

DRUGS (1)
  1. APROVEL [Suspect]
     Indication: ESSENTIAL HYPERTENSION
     Dates: end: 20100211

REACTIONS (3)
  - CAESAREAN SECTION [None]
  - DRUG EXPOSURE DURING PREGNANCY [None]
  - PREGNANCY [None]
